FAERS Safety Report 23745121 (Version 1)
Quarter: 2024Q2

REPORT INFORMATION
  Report Type: Report from Study
  Country: CA (occurrence: CA)
  Receive Date: 20240416
  Receipt Date: 20240416
  Transmission Date: 20240716
  Serious: Yes (Other)
  Sender: FDA-Public Use
  Company Number: CA-ABBVIE-5719340

PATIENT
  Age: 82 Year
  Sex: Female

DRUGS (1)
  1. RINVOQ [Suspect]
     Active Substance: UPADACITINIB
     Indication: Dermatitis atopic
     Dosage: STRENGTH: 15 MG
     Route: 048
     Dates: start: 20240201

REACTIONS (6)
  - Acute kidney injury [Recovering/Resolving]
  - Skin lesion [Unknown]
  - Fluid intake reduced [Unknown]
  - Syncope [Recovered/Resolved]
  - Renal impairment [Recovered/Resolved]
  - Hypophagia [Unknown]

NARRATIVE: CASE EVENT DATE: 20240101
